FAERS Safety Report 8964202 (Version 8)
Quarter: 2013Q4

REPORT INFORMATION
  Report Type: Spontaneous
  Country: US (occurrence: US)
  Receive Date: 20121214
  Receipt Date: 20131121
  Transmission Date: 20140711
  Serious: Yes (Hospitalization, Other)
  Sender: FDA-Public Use
  Company Number: US-PFIZER INC-2012315770

PATIENT
  Age: 97 Year
  Sex: Female
  Weight: 81.18 kg

DRUGS (13)
  1. NEURONTIN [Suspect]
     Indication: NEURALGIA
     Dosage: 100 MG, 3X/DAY
     Route: 048
     Dates: start: 1998
  2. NEURONTIN [Suspect]
     Indication: POST HERPETIC NEURALGIA
     Dosage: 800 MG, 4X/DAY
     Route: 048
  3. NEURONTIN [Suspect]
     Dosage: 100 MG, 3X/DAY
     Route: 048
  4. NEURONTIN [Suspect]
     Dosage: UNK, 4X/DAY
     Dates: start: 1999
  5. CELEBREX [Suspect]
     Indication: RHEUMATOID ARTHRITIS
     Dosage: 100 MG, 2X/DAY
     Route: 048
     Dates: start: 1998
  6. CELEBREX [Suspect]
     Dosage: UNK, 2X/DAY
     Dates: start: 1999, end: 2013
  7. KLONOPIN [Concomitant]
     Dosage: UNK
  8. ATENOLOL [Concomitant]
     Dosage: UNK
  9. TRAZODONE [Concomitant]
     Dosage: UNK
  10. LASIX [Concomitant]
     Dosage: UNK
  11. ZANTAC [Concomitant]
     Dosage: UNK
  12. LISINOPRIL [Concomitant]
     Dosage: UNK
  13. VICODIN [Concomitant]
     Dosage: UNK

REACTIONS (10)
  - Pneumonia [Recovered/Resolved]
  - Weight decreased [Recovered/Resolved]
  - Dyspnoea [Recovered/Resolved]
  - Hypophagia [Unknown]
  - Malaise [Not Recovered/Not Resolved]
  - Nasopharyngitis [Not Recovered/Not Resolved]
  - Throat irritation [Not Recovered/Not Resolved]
  - Cough [Not Recovered/Not Resolved]
  - Asthenia [Unknown]
  - Decreased appetite [Unknown]
